FAERS Safety Report 6262279-3 (Version None)
Quarter: 2009Q3

REPORT INFORMATION
  Report Type: 
  Country: None (occurrence: None)
  Receive Date: 20090709
  Receipt Date: 20090701
  Transmission Date: 20100115
  Serious: Yes (Other)
  Sender: FDA-Public Use
  Company Number: US-PFIZER INC-2009235937

PATIENT
  Sex: Female
  Weight: 93.424 kg

DRUGS (6)
  1. GEODON [Suspect]
     Indication: BIPOLAR I DISORDER
  2. METFORMIN HCL [Suspect]
  3. TRAZODONE HCL [Suspect]
  4. SINGULAIR [Suspect]
  5. CYMBALTA [Suspect]
  6. TOPAMAX [Suspect]

REACTIONS (1)
  - ABORTION SPONTANEOUS [None]
